FAERS Safety Report 21196371 (Version 4)
Quarter: 2022Q3

REPORT INFORMATION
  Report Type: Report from Study
  Country: CA (occurrence: CA)
  Receive Date: 20220810
  Receipt Date: 20220925
  Transmission Date: 20221027
  Serious: Yes (Hospitalization)
  Sender: FDA-Public Use
  Company Number: CA-BRISTOL-MYERS SQUIBB COMPANY-BMS-2022-032545

PATIENT
  Age: 78 Year
  Sex: Male
  Weight: 83.9 kg

DRUGS (4)
  1. OPDIVO [Suspect]
     Active Substance: NIVOLUMAB
     Indication: Gastrointestinal cancer metastatic
     Dosage: Q2WKS
     Route: 042
     Dates: start: 20220127
  2. OPDIVO [Suspect]
     Active Substance: NIVOLUMAB
     Indication: Metastatic gastric cancer
     Dosage: Q2W
     Route: 041
     Dates: start: 20220127, end: 20220920
  3. BISOPROLOL FUMARATE [Concomitant]
     Active Substance: BISOPROLOL FUMARATE
     Indication: Product used for unknown indication
     Route: 065
  4. FISH OIL [Concomitant]
     Active Substance: FISH OIL
     Indication: Product used for unknown indication
     Route: 065

REACTIONS (39)
  - Arthralgia [Not Recovered/Not Resolved]
  - Dyspnoea exertional [Not Recovered/Not Resolved]
  - Oropharyngeal discomfort [Unknown]
  - Myalgia [Not Recovered/Not Resolved]
  - Back pain [Recovered/Resolved]
  - Constipation [Recovered/Resolved]
  - Taste disorder [Unknown]
  - Dyspnoea [Unknown]
  - Vision blurred [Unknown]
  - Rash pruritic [Recovering/Resolving]
  - Rash [Unknown]
  - Nausea [Recovered/Resolved]
  - Urine output decreased [Recovered/Resolved]
  - Decreased appetite [Unknown]
  - Fatigue [Not Recovered/Not Resolved]
  - Weight decreased [Unknown]
  - Abdominal pain [Recovered/Resolved]
  - Urine flow decreased [Unknown]
  - Platelet count decreased [Unknown]
  - Chromaturia [Recovered/Resolved]
  - Faeces soft [Unknown]
  - Increased appetite [Unknown]
  - Thirst [Unknown]
  - Eye contusion [Unknown]
  - Somnolence [Unknown]
  - Gait disturbance [Recovering/Resolving]
  - Diarrhoea [Unknown]
  - Dry eye [Unknown]
  - Fall [Unknown]
  - Pruritus [Unknown]
  - Insomnia [Not Recovered/Not Resolved]
  - Paraesthesia [Unknown]
  - Hypoaesthesia [Unknown]
  - Musculoskeletal stiffness [Unknown]
  - Asthenia [Unknown]
  - Dizziness [Unknown]
  - Peripheral swelling [Unknown]
  - Bone pain [Unknown]
  - Contusion [Unknown]

NARRATIVE: CASE EVENT DATE: 20220611
